FAERS Safety Report 18133961 (Version 4)
Quarter: 2020Q4

REPORT INFORMATION
  Report Type: Spontaneous
  Country: GB (occurrence: GB)
  Receive Date: 20200811
  Receipt Date: 20201216
  Transmission Date: 20210113
  Serious: Yes (Other)
  Sender: FDA-Public Use
  Company Number: GB-REGENERON PHARMACEUTICALS, INC.-2020-69530

PATIENT

DRUGS (5)
  1. ACCRETE D3 [Concomitant]
     Active Substance: CALCIUM CARBONATE\CHOLECALCIFEROL
     Indication: OSTEOPENIA
     Dosage: UNK
  2. VERAPAMIL [Concomitant]
     Active Substance: VERAPAMIL HYDROCHLORIDE
     Indication: ATRIAL FIBRILLATION
     Dosage: 80 MG
  3. EYLEA [Suspect]
     Active Substance: AFLIBERCEPT
     Indication: NEOVASCULAR AGE-RELATED MACULAR DEGENERATION
     Dosage: 2 MG, ONCE (RIGHT EYE)
     Route: 031
     Dates: start: 20200624, end: 20200624
  4. WARFARIN [Concomitant]
     Active Substance: WARFARIN
     Indication: ATRIAL FIBRILLATION
     Dosage: 3 MG
  5. GOLD LUTEIN [Concomitant]
     Indication: MACULAR DEGENERATION
     Dosage: 20 MG, QD

REACTIONS (7)
  - Rash erythematous [Unknown]
  - Photophobia [Not Recovered/Not Resolved]
  - Metamorphopsia [Not Recovered/Not Resolved]
  - Vitreous floaters [Recovered/Resolved]
  - Retinal oedema [Unknown]
  - Photopsia [Not Recovered/Not Resolved]
  - Intra-ocular injection complication [Unknown]

NARRATIVE: CASE EVENT DATE: 20200624
